FAERS Safety Report 23773961 (Version 1)
Quarter: 2024Q2

REPORT INFORMATION
  Report Type: Spontaneous
  Country: US (occurrence: None)
  Receive Date: 20240422
  Receipt Date: 20240422
  Transmission Date: 20240716
  Serious: Yes (Hospitalization)
  Sender: FDA-Public Use
  Company Number: None

PATIENT
  Sex: Female

DRUGS (1)
  1. VUMERITY [Suspect]
     Active Substance: DIROXIMEL FUMARATE
     Indication: Multiple sclerosis
     Dosage: TAKE 1 CAPSULE BY MONTH 2 TIMES A DAY FOR 7 DAYS THEN 2 CAPSULES BY MOUTH 2 TIMES A DAY THEREAFTER
     Route: 048
     Dates: start: 202403

REACTIONS (2)
  - Multiple sclerosis relapse [None]
  - Pruritus [None]
